FAERS Safety Report 4328675-6 (Version None)
Quarter: 2004Q1

REPORT INFORMATION
  Report Type: 
  Country: None (occurrence: None)
  Receive Date: 20040324
  Receipt Date: 20040310
  Transmission Date: 20041129
  Serious: Yes (Hospitalization)
  Sender: FDA-Public Use
  Company Number: F2002-00295

PATIENT
  Age: 66 Year
  Sex: Male

DRUGS (3)
  1. IMMUCYST (BCG - CONNAUGHT) (BCG THERAPEUTICS), AVENTIS PASTEUR LTD. [Suspect]
     Indication: BLADDER CANCER
     Dosage: (1.0 DF, 1 WK), I.VES., BLADDER
     Route: 043
     Dates: start: 20010817, end: 20010915
  2. LEVOTHYROXINE SODIUM [Concomitant]
  3. BIPROFENID [Concomitant]

REACTIONS (8)
  - EOSINOPHILIA [None]
  - GAMMA-GLUTAMYLTRANSFERASE INCREASED [None]
  - LEUKOCYTOCLASTIC VASCULITIS [None]
  - LYMPHADENOPATHY [None]
  - PRURITUS [None]
  - PYREXIA [None]
  - RASH MACULO-PAPULAR [None]
  - T-CELL LYMPHOMA [None]
